FAERS Safety Report 9321284 (Version 1)
Quarter: 2013Q2

REPORT INFORMATION
  Report Type: Spontaneous
  Country: TW (occurrence: None)
  Receive Date: 20130528
  Receipt Date: 20130528
  Transmission Date: 20140414
  Serious: Yes (Other)
  Sender: FDA-Public Use
  Company Number: 2013P1006135

PATIENT
  Age: 68 Year
  Sex: Male

DRUGS (2)
  1. LITHIUM [Suspect]
     Indication: BIPOLAR DISORDER
  2. UNSPECIFIED SEDATIVE MEDICATIONS [Concomitant]

REACTIONS (12)
  - Stupor [None]
  - Choreoathetosis [None]
  - Dyskinesia [None]
  - Myoclonus [None]
  - Atrial flutter [None]
  - Antipsychotic drug level above therapeutic [None]
  - Toxicity to various agents [None]
  - Hyperreflexia [None]
  - Confusional state [None]
  - Diarrhoea [None]
  - Dehydration [None]
  - Renal failure acute [None]
